FAERS Safety Report 14081014 (Version 1)
Quarter: 2017Q4

REPORT INFORMATION
  Report Type: Spontaneous
  Country: None (occurrence: US)
  Receive Date: 20171012
  Receipt Date: 20171012
  Transmission Date: 20180321
  Serious: No
  Sender: FDA-Public Use
  Company Number: US-NOVOPROD-563278

PATIENT
  Age: 69 Year
  Sex: Male

DRUGS (1)
  1. SAXENDA [Suspect]
     Active Substance: LIRAGLUTIDE
     Indication: WEIGHT DECREASED
     Dosage: 3.0 MG ONCE A DAY IN THE AM
     Route: 058
     Dates: start: 2016

REACTIONS (3)
  - Product storage error [Recovering/Resolving]
  - Weight increased [Recovering/Resolving]
  - Drug ineffective [Recovering/Resolving]
